FAERS Safety Report 4422243-3 (Version None)
Quarter: 2004Q3

REPORT INFORMATION
  Report Type: 
  Country: None (occurrence: None)
  Receive Date: 20040810
  Receipt Date: 20040803
  Transmission Date: 20050211
  Serious: Yes (Disabling)
  Sender: FDA-Public Use
  Company Number: US-MERCK-0408USA00352

PATIENT
  Age: 68 Year
  Sex: Female

DRUGS (10)
  1. [THERAPY UNSPECIFIED] [Concomitant]
     Indication: RHINITIS ALLERGIC
     Route: 065
  2. [THERAPY UNSPECIFIED] [Concomitant]
     Indication: CONVULSION
     Route: 065
  3. TYLENOL W/ CODEINE [Concomitant]
     Route: 065
  4. ASPIRIN [Concomitant]
     Route: 065
  5. ALLEGRA [Concomitant]
     Indication: RHINITIS ALLERGIC
     Route: 065
  6. LASIX [Concomitant]
     Route: 065
  7. PROTONIX [Concomitant]
     Route: 065
  8. ZANTAC [Concomitant]
     Route: 065
  9. ZOCOR [Suspect]
     Indication: BLOOD CHOLESTEROL INCREASED
     Route: 048
     Dates: start: 20031001, end: 20040701
  10. EFFEXOR [Concomitant]
     Route: 065

REACTIONS (7)
  - CONSTIPATION [None]
  - DECREASED APPETITE [None]
  - DRY SKIN [None]
  - HYPERSENSITIVITY [None]
  - MUSCULAR WEAKNESS [None]
  - NAUSEA [None]
  - NERVOUS SYSTEM DISORDER [None]
